FAERS Safety Report 7804698-7 (Version None)
Quarter: 2011Q4

REPORT INFORMATION
  Report Type: 
  Country: None (occurrence: None)
  Receive Date: 20111010
  Receipt Date: 20110929
  Transmission Date: 20120403
  Serious: Yes (Hospitalization, Other)
  Sender: FDA-Public Use
  Company Number: US-BAYER-2011-035198

PATIENT
  Age: 28 Year
  Sex: Female
  Weight: 47.166 kg

DRUGS (5)
  1. YASMIN [Suspect]
     Indication: CONTRACEPTION
     Dosage: UNK
     Dates: start: 20070918, end: 20080613
  2. YAZ [Suspect]
     Indication: CONTRACEPTION
     Dosage: UNK
     Dates: start: 20080613, end: 20090319
  3. NAPROXEN [Concomitant]
     Dosage: UNK
     Dates: start: 20090119
  4. PROMETHAZINE [Concomitant]
     Indication: MULTIPLE ALLERGIES
     Dosage: 25 MG, QD
     Dates: start: 20090416, end: 20090422
  5. METRONIDAZOLE [Concomitant]
     Dosage: UNK
     Dates: start: 20090126

REACTIONS (2)
  - CHOLECYSTITIS CHRONIC [None]
  - GALLBLADDER DISORDER [None]
